FAERS Safety Report 9880060 (Version 1)
Quarter: 2014Q1

REPORT INFORMATION
  Report Type: Spontaneous
  Country: US (occurrence: US)
  Receive Date: 20140207
  Receipt Date: 20140207
  Transmission Date: 20141002
  Serious: No
  Sender: FDA-Public Use
  Company Number: US-BIOGENIDEC-2014BI011280

PATIENT
  Age: 57 Year
  Sex: Female

DRUGS (17)
  1. AVONEX [Suspect]
     Indication: MULTIPLE SCLEROSIS
     Route: 030
  2. ALBUTEROL SULFATE [Concomitant]
  3. ASPIRIN [Concomitant]
  4. B COMPLEX [Concomitant]
  5. C COMPLEX (VITAMIN C) [Concomitant]
  6. BENADRYL ALLERGY [Concomitant]
  7. CALCIUM+D3 [Concomitant]
  8. CELEXA [Concomitant]
  9. CERTAVITE SR ANTIOXIDANT [Concomitant]
  10. CYANOCOBALAMIN [Concomitant]
  11. NEURONTIN [Concomitant]
  12. SOMA [Concomitant]
  13. SYNTHROID [Concomitant]
  14. TRAZODONE HCL [Concomitant]
  15. ULTRAM [Concomitant]
  16. ZANTAC [Concomitant]
  17. ZOCOR [Concomitant]

REACTIONS (2)
  - Injection site haemorrhage [Unknown]
  - Adverse event [Unknown]
